FAERS Safety Report 11404975 (Version 8)
Quarter: 2016Q3

REPORT INFORMATION
  Report Type: Spontaneous
  Country: KR (occurrence: KR)
  Receive Date: 20150821
  Receipt Date: 20160928
  Transmission Date: 20161109
  Serious: Yes (Other)
  Sender: FDA-Public Use
  Company Number: KR-009507513-1508KOR005736

PATIENT
  Age: 68 Year
  Sex: Female
  Weight: 50 kg

DRUGS (34)
  1. NASEA [Concomitant]
     Active Substance: RAMOSETRON HYDROCHLORIDE
     Dosage: 0.6 MG,  INFUSION, ONCE A DAY
     Route: 041
     Dates: start: 20150727, end: 20150730
  2. FENTANYL CITRATE. [Concomitant]
     Active Substance: FENTANYL CITRATE
     Indication: PAIN PROPHYLAXIS
     Dosage: 100 MICROGRAM, TWICE A DAY
     Route: 008
     Dates: start: 20150727, end: 20150727
  3. ACUPAN [Concomitant]
     Active Substance: NEFOPAM HYDROCHLORIDE
     Dosage: 30 MG, ONCE
     Route: 048
     Dates: start: 20150727, end: 20150727
  4. PHLOROGLUCINOL [Concomitant]
     Active Substance: PHLOROGLUCINOL
     Indication: PAIN PROPHYLAXIS
     Dosage: 80 MG, THREE TIMES A DAY
     Route: 048
     Dates: start: 20150729
  5. TRIDOL (TRAMADOL HYDROCHLORIDE) [Concomitant]
     Indication: PAIN PROPHYLAXIS
     Dosage: 50 MG, THREE TIMES A DAY
     Route: 048
     Dates: start: 20150729
  6. DIABEX [Concomitant]
     Active Substance: METFORMIN HYDROCHLORIDE
     Indication: DIABETES MELLITUS
     Dosage: 500 MG, ONCE A DAY
     Route: 048
     Dates: start: 20150730
  7. PACETIN [Concomitant]
     Indication: INFECTION PROPHYLAXIS
     Dosage: 1 G, TWICE A DAY
     Route: 042
     Dates: start: 20150727, end: 20150727
  8. TRADJENTA [Concomitant]
     Active Substance: LINAGLIPTIN
     Indication: DIABETES MELLITUS
     Dosage: 1 TABLET, ONCE A DAY
     Route: 048
     Dates: start: 20150730
  9. MVH INJECTION [Concomitant]
     Indication: VITAMIN SUPPLEMENTATION
     Dosage: 5 ML, ONCE A DAY
     Route: 042
     Dates: start: 20150728, end: 20150729
  10. RABIET [Concomitant]
     Indication: PROPHYLAXIS
     Dosage: 10 MG, ONCE A DAY
     Route: 048
     Dates: start: 20150728, end: 20150802
  11. PERDIPINE [Concomitant]
     Active Substance: NICARDIPINE HYDROCHLORIDE
     Indication: BLOOD PRESSURE MANAGEMENT
     Dosage: 0.5 MG, TWICE A DAY
     Route: 042
     Dates: start: 20150727
  12. PETHIDINE HCL FRESENIUS [Concomitant]
     Indication: PAIN PROPHYLAXIS
     Dosage: 12.5 MG, ONCE
     Route: 042
     Dates: start: 20150727, end: 20150727
  13. MOTILITONE [Concomitant]
     Active Substance: HERBALS
     Indication: PROPHYLAXIS
     Dosage: 1 TABLET, TWICE A DAY
     Route: 048
     Dates: start: 20150723, end: 20150725
  14. STABLON [Concomitant]
     Active Substance: TIANEPTINE
     Indication: PROPHYLAXIS
     Dosage: 1 TABLET, TWICE A DAY
     Route: 048
     Dates: start: 20150723, end: 20150725
  15. COLYTE [Concomitant]
     Active Substance: POLYETHYLENE GLYCOL 3350\POTASSIUM CHLORIDE\SODIUM BICARBONATE\SODIUM CHLORIDE\SODIUM SULFATE ANHYDROUS
     Indication: COLONIC LAVAGE
     Dosage: DOSE 274.31G, ONCE A DAY
     Route: 048
     Dates: start: 20150726, end: 20150726
  16. HYDRALAZINE HYDROCHLORIDE. [Concomitant]
     Active Substance: HYDRALAZINE HYDROCHLORIDE
     Indication: HYPERTENSIVE CRISIS
     Dosage: 10 MG, ONCE
     Route: 042
     Dates: start: 20150727, end: 20150727
  17. ACETYLCARNITINE HYDROCHLORIDE [Concomitant]
     Active Substance: ACETYLCARNITINE HYDROCHLORIDE
     Indication: PROPHYLAXIS
     Dosage: 5 MG, TWICE A DAY
     Route: 048
     Dates: start: 20150723, end: 20150725
  18. ZIPAN (TRAMADOL HYDROCHLORIDE) [Concomitant]
     Indication: HEADACHE
     Dosage: 50 MG, BID
     Route: 042
     Dates: start: 20150728, end: 20150728
  19. BRIDION [Suspect]
     Active Substance: SUGAMMADEX
     Indication: NEUROMUSCULAR BLOCKADE REVERSAL
     Dosage: 100 MG (2 MG/KG), ONCE
     Route: 042
     Dates: start: 20150727, end: 20150727
  20. ACUPAN [Concomitant]
     Active Substance: NEFOPAM HYDROCHLORIDE
     Indication: PAIN PROPHYLAXIS
     Dosage: 200 MG, INFUSION, ONCE A DAY
     Route: 041
     Dates: start: 20150727, end: 20150730
  21. HALCION [Concomitant]
     Active Substance: TRIAZOLAM
     Indication: PROPHYLAXIS
     Dosage: 0.125 MG, ONCE A DAY
     Route: 048
     Dates: start: 20150727, end: 20150727
  22. DENOGAN [Concomitant]
     Active Substance: PROPACETAMOL HYDROCHLORIDE
     Indication: HEADACHE
     Dosage: 1 G, QD
     Route: 042
     Dates: start: 20150727, end: 20150727
  23. AMARYL [Concomitant]
     Active Substance: GLIMEPIRIDE
     Indication: DIABETES MELLITUS
     Dosage: 1 MG, ONCE A DAY
     Route: 048
     Dates: start: 20150730
  24. BESZYME [Concomitant]
     Indication: PROPHYLAXIS
     Dosage: 1 DF, THREE TIMES A DAY
     Route: 048
     Dates: start: 20150729
  25. ROCURONIUM BROMIDE. [Suspect]
     Active Substance: ROCURONIUM BROMIDE
     Indication: MUSCLE RELAXANT THERAPY
     Dosage: 50 MG, ONCE
     Route: 042
     Dates: start: 20150727, end: 20150727
  26. ROCURONIUM BROMIDE. [Suspect]
     Active Substance: ROCURONIUM BROMIDE
     Dosage: 80 MG, ONCE
     Route: 042
     Dates: start: 20150727, end: 20150727
  27. ENAFON [Concomitant]
     Indication: PROPHYLAXIS
     Dosage: 10 MG, ONCE A DAY
     Route: 048
     Dates: start: 20150723, end: 20150725
  28. GASTER [Concomitant]
     Active Substance: FAMOTIDINE
     Indication: HAEMORRHAGE PROPHYLAXIS
     Dosage: 20 MG, ONCE A DAY
     Route: 042
     Dates: start: 20150727, end: 20150728
  29. AMBROXOL HYDROCHLORIDE [Concomitant]
     Active Substance: AMBROXOL HYDROCHLORIDE
     Indication: PROPHYLAXIS
     Dosage: 15 MG, THREE TIMES A DAY
     Route: 042
     Dates: start: 20150727, end: 20150728
  30. NASEA [Concomitant]
     Active Substance: RAMOSETRON HYDROCHLORIDE
     Indication: PROPHYLAXIS OF NAUSEA AND VOMITING
     Dosage: 0.3 MG, ONCE
     Route: 042
     Dates: start: 20150727, end: 20150727
  31. DENOGAN [Concomitant]
     Active Substance: PROPACETAMOL HYDROCHLORIDE
     Indication: PAIN PROPHYLAXIS
     Dosage: 2 G, QD
     Route: 008
     Dates: start: 20150727, end: 20150727
  32. FENTANYL CITRATE. [Concomitant]
     Active Substance: FENTANYL CITRATE
     Dosage: 1500 MICROGRAM, INFUSION, ONCE A DAY
     Route: 041
     Dates: start: 20150727, end: 20150730
  33. FREEPAN [Concomitant]
     Indication: PAIN PROPHYLAXIS
     Dosage: 20 MG, ONCE A DAY
     Route: 042
     Dates: start: 20150730, end: 20150801
  34. KEFENTECH-L [Concomitant]
     Indication: MUSCULOSKELETAL DISCOMFORT
     Dosage: 30 MG, UNK
     Route: 061

REACTIONS (4)
  - Musculoskeletal discomfort [Recovered/Resolved]
  - Headache [Recovered/Resolved]
  - Hypertensive crisis [Recovered/Resolved]
  - Nausea [Recovered/Resolved]

NARRATIVE: CASE EVENT DATE: 20150727
